FAERS Safety Report 17465967 (Version 1)
Quarter: 2020Q1

REPORT INFORMATION
  Report Type: Spontaneous
  Country: FR (occurrence: FR)
  Receive Date: 20200227
  Receipt Date: 20200227
  Transmission Date: 20200409
  Serious: Yes (Other)
  Sender: FDA-Public Use
  Company Number: FR-AUROBINDO-AUR-APL-2020-009610

PATIENT
  Age: 30 Year
  Sex: Male

DRUGS (2)
  1. ALPRAZOLAM. [Suspect]
     Active Substance: ALPRAZOLAM
     Indication: PRODUCT USED FOR UNKNOWN INDICATION
     Dosage: UNK
     Route: 048
     Dates: start: 2019
  2. STILNOX [Suspect]
     Active Substance: ZOLPIDEM TARTRATE
     Indication: PRODUCT USED FOR UNKNOWN INDICATION
     Dosage: 20 DOSAGE FORM, DAILY (20 COMPRIM?S/JOUR)
     Route: 048
     Dates: start: 2019

REACTIONS (3)
  - Circadian rhythm sleep disorder [Unknown]
  - Intentional product misuse [Unknown]
  - Behaviour disorder [Unknown]

NARRATIVE: CASE EVENT DATE: 2019
